APPROVED DRUG PRODUCT: APHTHASOL
Active Ingredient: AMLEXANOX
Strength: 5%
Dosage Form/Route: PASTE;DENTAL
Application: N020511 | Product #001
Applicant: ULURU INC
Approved: Dec 17, 1996 | RLD: No | RS: No | Type: DISCN